FAERS Safety Report 5031511-6 (Version None)
Quarter: 2006Q2

REPORT INFORMATION
  Report Type: 
  Country: None (occurrence: None)
  Receive Date: 20060616
  Receipt Date: 20060530
  Transmission Date: 20061013
  Serious: Yes (Other)
  Sender: FDA-Public Use
  Company Number: 6022912F

PATIENT
  Sex: Female

DRUGS (6)
  1. NIASPAN [Suspect]
     Dosage: 500 MG QD PO
     Route: 048
     Dates: start: 20060518, end: 20060529
  2. OMEGA 3 MARINE TRIGLYCERIDES [Concomitant]
  3. ACETYLSALICYLIC ACID SRT [Concomitant]
  4. IRBESARTAN [Concomitant]
  5. ATORVASTATIN CALCIUM [Concomitant]
  6. ACETAMINOPHEN W/ CODEINE [Concomitant]

REACTIONS (8)
  - ABASIA [None]
  - BURNING SENSATION [None]
  - DIARRHOEA [None]
  - DYSPNOEA [None]
  - ERYTHEMA [None]
  - FLUSHING [None]
  - PRURITUS GENERALISED [None]
  - VOMITING [None]
